FAERS Safety Report 8572766-0 (Version None)
Quarter: 2012Q3

REPORT INFORMATION
  Report Type: 
  Country: None (occurrence: None)
  Receive Date: 20120806
  Receipt Date: 20120730
  Transmission Date: 20120928
  Serious: Yes (Other)
  Sender: FDA-Public Use
  Company Number: CA-ROCHE-1095175

PATIENT
  Sex: Male

DRUGS (6)
  1. ASPIRIN [Concomitant]
  2. RAMIPRIL [Concomitant]
  3. TRIDURAL [Concomitant]
  4. TRAMADOL HCL [Concomitant]
  5. VEMURAFENIB [Suspect]
     Indication: METASTATIC MALIGNANT MELANOMA
     Route: 048
     Dates: start: 20120724, end: 20120729
  6. SALMON OIL [Concomitant]

REACTIONS (4)
  - BACK PAIN [None]
  - NAUSEA [None]
  - BLOOD URINE PRESENT [None]
  - VOMITING [None]
